FAERS Safety Report 7476731-6 (Version None)
Quarter: 2011Q2

REPORT INFORMATION
  Report Type: 
  Country: None (occurrence: None)
  Receive Date: 20110512
  Receipt Date: 20110510
  Transmission Date: 20111010
  Serious: Yes (Hospitalization, Other)
  Sender: FDA-Public Use
  Company Number: US-PFIZER INC-2011063570

PATIENT
  Sex: Male

DRUGS (13)
  1. MYCOPHENOLATE MOFETIL [Concomitant]
     Indication: RENAL TRANSPLANT
     Dosage: 720 MG, 2X/DAY
     Route: 048
     Dates: start: 20090224
  2. MAGIC MOUTHWASH [Concomitant]
     Dosage: UNK
     Route: 048
     Dates: start: 20110224, end: 20110418
  3. PREDNISONE [Concomitant]
     Dosage: 5 MG, UNK
     Route: 048
     Dates: start: 20090224, end: 20110309
  4. CP-690,550 [Suspect]
     Indication: KIDNEY TRANSPLANT REJECTION
     Dosage: 5 MG, 2X/DAY
     Route: 048
     Dates: start: 20091118
  5. ZITHROMAX [Suspect]
     Indication: PHARYNGITIS
  6. SENSIPAR [Concomitant]
     Dosage: UNK
     Route: 048
     Dates: start: 20081120, end: 20110310
  7. AMLODIPINE [Concomitant]
     Dosage: UNK
     Route: 048
     Dates: start: 20081120
  8. METOPROLOL [Concomitant]
     Dosage: UNK
     Route: 048
     Dates: start: 20081116, end: 20110312
  9. ZITHROMAX [Suspect]
     Indication: EAR INFECTION
     Dosage: UNK
     Route: 048
     Dates: start: 20110221, end: 20110226
  10. AUGMENTIN [Suspect]
     Indication: EAR INFECTION
     Dosage: UNK
     Dates: start: 20110224, end: 20110303
  11. LIPITOR [Concomitant]
     Dosage: UNK
     Route: 048
     Dates: start: 20090522, end: 20110310
  12. VITAMIN D [Concomitant]
     Dosage: UNK
     Route: 048
     Dates: start: 20100511
  13. AUGMENTIN [Suspect]
     Indication: PHARYNGITIS

REACTIONS (3)
  - VOMITING [None]
  - HYPOKALAEMIA [None]
  - NAUSEA [None]
